FAERS Safety Report 9425166 (Version 1)
Quarter: 2013Q3

REPORT INFORMATION
  Report Type: Report from Study
  Country: US (occurrence: US)
  Receive Date: 20130729
  Receipt Date: 20130729
  Transmission Date: 20140515
  Serious: Yes (Other)
  Sender: FDA-Public Use
  Company Number: US-JNJFOC-20130712521

PATIENT
  Age: 59 Year
  Sex: Female
  Weight: 74.84 kg

DRUGS (3)
  1. REMICADE [Suspect]
     Indication: CROHN^S DISEASE
     Route: 042
  2. REMICADE [Suspect]
     Indication: CROHN^S DISEASE
     Route: 042
     Dates: start: 201209, end: 201209
  3. HUMIRA [Suspect]
     Indication: PSORIASIS
     Route: 065
     Dates: start: 2012

REACTIONS (2)
  - Psoriasis [Not Recovered/Not Resolved]
  - Squamous cell carcinoma [Unknown]
